FAERS Safety Report 19685336 (Version 3)
Quarter: 2021Q3

REPORT INFORMATION
  Report Type: Spontaneous
  Country: US (occurrence: US)
  Receive Date: 20210811
  Receipt Date: 20210825
  Transmission Date: 20211014
  Serious: Yes (Hospitalization)
  Sender: FDA-Public Use
  Company Number: US-ELI_LILLY_AND_COMPANY-US202108004550

PATIENT
  Age: 67 Year
  Sex: Female
  Weight: 85.72 kg

DRUGS (3)
  1. TADALAFIL. [Suspect]
     Active Substance: TADALAFIL
     Indication: PULMONARY ARTERIAL HYPERTENSION
     Dosage: UNK UNK, UNKNOWN
     Route: 065
  2. REMODULIN [Suspect]
     Active Substance: TREPROSTINIL
     Indication: PULMONARY ARTERIAL HYPERTENSION
     Dosage: UNK UNK, OTHER (15 NG/KG/MIN, CONTINUOUS)
     Route: 058
     Dates: start: 20210727
  3. REMODULIN [Suspect]
     Active Substance: TREPROSTINIL
     Dosage: UNK UNK, OTHER (15 NG/KG/MIN, CONTINUOUS)
     Route: 058

REACTIONS (7)
  - Vomiting [Unknown]
  - Dyspnoea [Unknown]
  - Nausea [Unknown]
  - Weight increased [Unknown]
  - Malaise [Unknown]
  - Dizziness [Unknown]
  - Fluid overload [Unknown]

NARRATIVE: CASE EVENT DATE: 20210729
